FAERS Safety Report 19437218 (Version 2)
Quarter: 2021Q2

REPORT INFORMATION
  Report Type: Spontaneous
  Country: US (occurrence: US)
  Receive Date: 20210618
  Receipt Date: 20210623
  Transmission Date: 20210717
  Serious: Yes (Other)
  Sender: FDA-Public Use
  Company Number: US-ALLERGAN-2123213US

PATIENT
  Sex: Female

DRUGS (1)
  1. ARMOUR THYROID [Suspect]
     Active Substance: THYROID, PORCINE
     Indication: AUTOIMMUNE THYROIDITIS
     Dosage: FOR 2?3 MONTHS

REACTIONS (6)
  - Gingival disorder [Recovered/Resolved]
  - Bone loss [Unknown]
  - Product quality issue [Unknown]
  - Nightmare [Not Recovered/Not Resolved]
  - Loose tooth [Not Recovered/Not Resolved]
  - Poor quality product administered [Unknown]
